FAERS Safety Report 15317123 (Version 3)
Quarter: 2018Q4

REPORT INFORMATION
  Report Type: Spontaneous
  Country: US (occurrence: US)
  Receive Date: 20180824
  Receipt Date: 20181002
  Transmission Date: 20190204
  Serious: Yes (Other)
  Sender: FDA-Public Use
  Company Number: US-AMGEN-USASP2018114660

PATIENT
  Age: 72 Year
  Sex: Female

DRUGS (1)
  1. BLINCYTO [Suspect]
     Active Substance: BLINATUMOMAB
     Indication: ACUTE LYMPHOCYTIC LEUKAEMIA RECURRENT
     Dosage: 9 MUG, QD
     Route: 042
     Dates: start: 20180815, end: 20180922

REACTIONS (6)
  - Tumour lysis syndrome [Not Recovered/Not Resolved]
  - Haemoglobin decreased [Unknown]
  - Cytokine release syndrome [Not Recovered/Not Resolved]
  - Nephrotic syndrome [Unknown]
  - White blood cell count decreased [Unknown]
  - Disseminated intravascular coagulation [Not Recovered/Not Resolved]

NARRATIVE: CASE EVENT DATE: 201808
